FAERS Safety Report 9455515 (Version 1)
Quarter: 2013Q3

REPORT INFORMATION
  Report Type: Spontaneous
  Country: MT (occurrence: MT)
  Receive Date: 20130813
  Receipt Date: 20130813
  Transmission Date: 20140515
  Serious: Yes (Hospitalization)
  Sender: FDA-Public Use
  Company Number: MT-AMGEN-MLTSP2013056136

PATIENT
  Age: 23 Year
  Sex: Male
  Weight: 77.19 kg

DRUGS (3)
  1. ENBREL [Suspect]
     Indication: JUVENILE IDIOPATHIC ARTHRITIS
     Dosage: 50 MG, QWK
     Route: 058
  2. MEASLES, MUMPS AND RUBELLA VACCINE [Suspect]
     Indication: PRODUCT USED FOR UNKNOWN INDICATION
     Dosage: UNK
     Route: 065
     Dates: start: 201307
  3. HEPATITIS A VACCINE [Suspect]
     Indication: PRODUCT USED FOR UNKNOWN INDICATION
     Dosage: UNK
     Route: 065
     Dates: start: 201307

REACTIONS (3)
  - Chromaturia [Unknown]
  - Influenza like illness [Unknown]
  - Pyrexia [Not Recovered/Not Resolved]
